FAERS Safety Report 12070685 (Version 1)
Quarter: 2016Q1

REPORT INFORMATION
  Report Type: Spontaneous
  Country: US (occurrence: US)
  Receive Date: 20160211
  Receipt Date: 20160211
  Transmission Date: 20160526
  Serious: No
  Sender: FDA-Public Use
  Company Number: US-009507513-1601USA011495

PATIENT
  Age: 43 Year
  Sex: Female

DRUGS (17)
  1. DOXEPIN HYDROCHLORIDE. [Concomitant]
     Active Substance: DOXEPIN HYDROCHLORIDE
  2. LATUDA [Concomitant]
     Active Substance: LURASIDONE HYDROCHLORIDE
  3. LAMICTAL [Suspect]
     Active Substance: LAMOTRIGINE
  4. KLONOPIN [Concomitant]
     Active Substance: CLONAZEPAM
  5. GABAPENTIN. [Concomitant]
     Active Substance: GABAPENTIN
  6. ELAVIL (ALLOPURINOL) [Concomitant]
  7. PROMETHAZINE [Concomitant]
     Active Substance: PROMETHAZINE\PROMETHAZINE HYDROCHLORIDE
  8. HALDOL [Concomitant]
     Active Substance: HALOPERIDOL
  9. NIRAVAM [Concomitant]
     Active Substance: ALPRAZOLAM
  10. BELSOMRA [Suspect]
     Active Substance: SUVOREXANT
     Indication: INSOMNIA
     Dosage: SPLIT TABLET
     Route: 048
     Dates: start: 201512
  11. PRILOSEC [Concomitant]
     Active Substance: OMEPRAZOLE MAGNESIUM
     Route: 048
  12. IMIPRAMINE [Concomitant]
     Active Substance: IMIPRAMINE
  13. GEODON [Concomitant]
     Active Substance: ZIPRASIDONE HYDROCHLORIDE\ZIPRASIDONE MESYLATE
  14. LASIX [Concomitant]
     Active Substance: FUROSEMIDE
  15. FIORINAL (ACETAMINOPHEN (+) ASPIRIN (+) CAFFEINE) [Concomitant]
  16. METFORMIN [Concomitant]
     Active Substance: METFORMIN HYDROCHLORIDE
  17. ATIVAN [Concomitant]
     Active Substance: LORAZEPAM

REACTIONS (2)
  - Wrong technique in product usage process [Unknown]
  - Somnolence [Unknown]
